FAERS Safety Report 4601956-4 (Version None)
Quarter: 2005Q1

REPORT INFORMATION
  Report Type: 
  Country: None (occurrence: None)
  Receive Date: 20050215
  Receipt Date: 20041124
  Transmission Date: 20050727
  Serious: Yes (Other)
  Sender: FDA-Public Use
  Company Number: 387471

PATIENT
  Age: 39 Year
  Sex: Female
  Weight: 54.4 kg

DRUGS (5)
  1. PEGASYS [Suspect]
     Indication: HEPATITIS C VIRUS
     Dosage: SUBCUTANEOUS
     Route: 058
     Dates: start: 20030915
  2. COPEGUS [Suspect]
     Indication: HEPATITIS C VIRUS
     Dosage: 5 DOSE FORM DAILY ORAL
     Route: 048
     Dates: start: 20030915
  3. XANAX [Concomitant]
  4. NEXIUM [Concomitant]
  5. METHADONE HCL [Concomitant]

REACTIONS (9)
  - DEPRESSION [None]
  - DISTURBANCE IN ATTENTION [None]
  - HAEMOGLOBIN DECREASED [None]
  - MEMORY IMPAIRMENT [None]
  - OEDEMA PERIPHERAL [None]
  - PSORIASIS [None]
  - TEETH BRITTLE [None]
  - VISION BLURRED [None]
  - WEIGHT DECREASED [None]
